FAERS Safety Report 9079423 (Version 1)
Quarter: 2013Q1

REPORT INFORMATION
  Report Type: Report from Study
  Country: US (occurrence: US)
  Receive Date: 20130130
  Receipt Date: 20130130
  Transmission Date: 20140127
  Serious: No
  Sender: FDA-Public Use
  Company Number: US-ABBOTT-12P-163-0968104-00

PATIENT
  Age: 61 Year
  Sex: Male

DRUGS (15)
  1. HUMIRA 40 MG/0.8 ML PEN [Suspect]
     Indication: CROHN^S DISEASE
     Dates: start: 2008
  2. OMEPRAZOLE [Concomitant]
     Indication: GASTROOESOPHAGEAL REFLUX DISEASE
     Dosage: 20MG DAILY
     Route: 048
  3. RESTORIL [Concomitant]
     Indication: INSOMNIA
     Dosage: 15MG AT NIGHT
     Route: 048
  4. AMIODARONE [Concomitant]
     Indication: ARRHYTHMIA
     Route: 048
  5. FORTICAL [Concomitant]
     Indication: PRODUCT USED FOR UNKNOWN INDICATION
  6. CITRACAL [Concomitant]
     Indication: SUPPLEMENTATION THERAPY
     Dosage: 200MG/400IU DAILY
     Route: 048
  7. CARVEDILOL [Concomitant]
     Indication: HYPERTENSION
     Dosage: 6.25MG DAILY
     Route: 048
  8. FUROSEMIDE [Concomitant]
     Indication: PRODUCT USED FOR UNKNOWN INDICATION
     Dosage: 20MG DAILY
     Route: 048
  9. FLOMAX [Concomitant]
     Indication: PROSTATOMEGALY
     Dosage: 20MG DAILY
     Route: 048
  10. EFFEXOR [Concomitant]
     Indication: ANXIETY
     Dosage: 150MG DAILY
     Route: 048
  11. FOLIC ACID [Concomitant]
     Indication: PRODUCT USED FOR UNKNOWN INDICATION
     Dosage: 1MG DAILY
  12. HYDROCODONE [Concomitant]
     Indication: PAIN
     Dosage: 10/325MG EVERY 6 HOURS AS NEEDED
     Route: 048
  13. OXYCONTIN [Concomitant]
     Indication: PAIN
     Dosage: 15MG EVERY 8 HOURS AS NEEDED
  14. RAMIPRIL [Concomitant]
     Indication: HYPERTENSION
     Route: 048
  15. CRESTOR [Concomitant]
     Indication: BLOOD CHOLESTEROL INCREASED
     Route: 048

REACTIONS (4)
  - Injection site papule [Not Recovered/Not Resolved]
  - Injection site induration [Not Recovered/Not Resolved]
  - Injection site erythema [Not Recovered/Not Resolved]
  - Injection site pain [Not Recovered/Not Resolved]
